FAERS Safety Report 5697864-0 (Version None)
Quarter: 2008Q2

REPORT INFORMATION
  Report Type: 
  Country: None (occurrence: None)
  Receive Date: 20080408
  Receipt Date: 20080328
  Transmission Date: 20081010
  Serious: Yes (Hospitalization)
  Sender: FDA-Public Use
  Company Number: GB-WYE-H03338508

PATIENT
  Age: 66 Year
  Sex: Female

DRUGS (4)
  1. IBUPROFEN [Suspect]
     Indication: NECK PAIN
     Dosage: UNKNOWN
     Route: 048
  2. BECOTIDE [Concomitant]
     Indication: ASTHMA
     Dosage: UNKNOWN
     Route: 055
  3. AMOXICILLIN [Concomitant]
     Indication: OTITIS EXTERNA
     Dosage: UNKNOWN
     Route: 048
  4. SALBUTAMOL [Concomitant]
     Indication: ASTHMA
     Dosage: UNKNOWN
     Route: 065

REACTIONS (6)
  - DRUG EFFECT DECREASED [None]
  - EROSIVE DUODENITIS [None]
  - GASTRITIS EROSIVE [None]
  - INTERVERTEBRAL DISCITIS [None]
  - OSTEOMYELITIS [None]
  - UPPER GASTROINTESTINAL HAEMORRHAGE [None]
